FAERS Safety Report 25005121 (Version 1)
Quarter: 2025Q1

REPORT INFORMATION
  Report Type: Spontaneous
  Country: CN (occurrence: CN)
  Receive Date: 20250224
  Receipt Date: 20250224
  Transmission Date: 20250409
  Serious: Yes (Other)
  Sender: WAYLIS THERAPEUTICS
  Company Number: CN-WAYLIS-2025-CN-000050

PATIENT
  Age: 79 Year
  Sex: Male

DRUGS (4)
  1. RABEPRAZOLE SODIUM [Suspect]
     Active Substance: RABEPRAZOLE SODIUM
     Indication: Helicobacter infection
     Route: 048
     Dates: start: 20250202, end: 20250208
  2. AMOXICILLIN [Suspect]
     Active Substance: AMOXICILLIN
     Route: 048
     Dates: start: 20250202, end: 20250208
  3. METRONIDAZOLE [Suspect]
     Active Substance: METRONIDAZOLE
     Route: 048
     Dates: start: 20250202, end: 20250208
  4. BISMUTH SUBCITRATE [Suspect]
     Active Substance: BISMUTH SUBCITRATE
     Route: 048
     Dates: start: 20250202, end: 20250208

REACTIONS (2)
  - Rash erythematous [Recovering/Resolving]
  - Pruritus [Unknown]

NARRATIVE: CASE EVENT DATE: 20250204
